FAERS Safety Report 9915987 (Version 1)
Quarter: 2014Q1

REPORT INFORMATION
  Report Type: Spontaneous
  Country: US (occurrence: None)
  Receive Date: 20140219
  Receipt Date: 20140219
  Transmission Date: 20141002
  Serious: Yes (Other)
  Sender: FDA-Public Use
  Company Number: DSU-2014-00286

PATIENT
  Age: 72 Year
  Sex: Female
  Weight: 59.88 kg

DRUGS (1)
  1. WELCHOL (COLESEVELAM HYDROCHLORIDE) (625 MILLIGRAM, TABLET) (COLESEVELAM HYDROCHLORIDE) [Suspect]
     Indication: HYPERCHOLESTEROLAEMIA
     Dosage: 1875 MG (625 MG, TID), PER ORAL
     Route: 048
     Dates: start: 201212, end: 201312

REACTIONS (6)
  - Drug administration error [None]
  - Muscle spasms [None]
  - Hypoaesthesia [None]
  - Angina pectoris [None]
  - Weight decreased [None]
  - Myalgia [None]
